FAERS Safety Report 20956492 (Version 1)
Quarter: 2022Q2

REPORT INFORMATION
  Report Type: Report from Study
  Country: DE (occurrence: DE)
  Receive Date: 20220614
  Receipt Date: 20220614
  Transmission Date: 20220721
  Serious: Yes (Other)
  Sender: FDA-Public Use
  Company Number: DE-JNJFOC-20220613465

PATIENT
  Age: 6 Decade
  Weight: 54 kg

DRUGS (2)
  1. BORTEZOMIB [Suspect]
     Active Substance: BORTEZOMIB
     Indication: Amyloidosis
     Dosage: 1.3 MILLIGRAM/SQ. METER
     Route: 065
     Dates: start: 20201127, end: 20210715
  2. DEXAMETHASONE [Concomitant]
     Active Substance: DEXAMETHASONE
     Indication: Product used for unknown indication
     Route: 065

REACTIONS (2)
  - Intestinal ulcer perforation [Unknown]
  - Off label use [Unknown]

NARRATIVE: CASE EVENT DATE: 20201127
